FAERS Safety Report 8081113-2 (Version None)
Quarter: 2012Q1

REPORT INFORMATION
  Report Type: 
  Country: None (occurrence: None)
  Receive Date: 20120130
  Receipt Date: 20120125
  Transmission Date: 20120608
  Serious: Yes (Hospitalization)
  Sender: FDA-Public Use
  Company Number: US-GLAXOSMITHKLINE-A0861793A

PATIENT
  Age: 61 Year
  Sex: Male
  Weight: 74 kg

DRUGS (6)
  1. CADUET [Concomitant]
  2. LIPITOR [Concomitant]
  3. LISINOPRIL [Concomitant]
  4. AVANDARYL [Suspect]
     Indication: DIABETES MELLITUS
     Dosage: 1TAB PER DAY
     Route: 048
     Dates: start: 20080929, end: 20100309
  5. EFFIENT [Concomitant]
  6. AVANDIA [Suspect]
     Indication: DIABETES MELLITUS
     Dosage: 4MG PER DAY
     Route: 048
     Dates: start: 20080929, end: 20100228

REACTIONS (2)
  - CARDIAC FAILURE [None]
  - MYOCARDIAL INFARCTION [None]
